FAERS Safety Report 9084001 (Version 2)
Quarter: 2013Q1

REPORT INFORMATION
  Report Type: Spontaneous
  Country: US (occurrence: US)
  Receive Date: 20130131
  Receipt Date: 20130311
  Transmission Date: 20140127
  Serious: No
  Sender: FDA-Public Use
  Company Number: US-PFIZER INC-2013037835

PATIENT
  Age: 80 Year
  Sex: Female
  Weight: 65.76 kg

DRUGS (5)
  1. PROTONIX [Suspect]
     Indication: GASTROOESOPHAGEAL REFLUX DISEASE
     Dosage: 1 DF, 1X/DAY
     Route: 048
     Dates: end: 20130117
  2. PROTONIX [Suspect]
     Indication: GASTRIC ULCER
  3. PRILOSEC [Suspect]
     Indication: GASTROOESOPHAGEAL REFLUX DISEASE
     Dosage: 20.6 MG, 1X/DAY
     Route: 048
     Dates: start: 20130123
  4. PRILOSEC [Suspect]
     Indication: GASTRIC ULCER
  5. SYNTHROID [Concomitant]
     Dosage: UNK

REACTIONS (4)
  - Abdominal pain upper [Unknown]
  - Nausea [Unknown]
  - Headache [Unknown]
  - Malaise [Unknown]
